FAERS Safety Report 11788487 (Version 1)
Quarter: 2015Q4

REPORT INFORMATION
  Report Type: Spontaneous
  Country: GR (occurrence: None)
  Receive Date: 20151125
  Receipt Date: 20151125
  Transmission Date: 20160305
  Serious: Yes (Hospitalization)
  Sender: FDA-Public Use
  Company Number: 15EU001735

PATIENT
  Age: 86 Year
  Sex: Female

DRUGS (8)
  1. ENTACT (ESCITALOPRAM OXALATE) [Concomitant]
  2. RYTMONORM (PROPAFENONE HYDROCHLORIDE) [Concomitant]
  3. MADOPAR (BENSERAZIDE HYDROCHLORIDE, LEVODOPA) [Concomitant]
     Active Substance: BENSERAZIDE HYDROCHLORIDE\LEVODOPA
  4. FEMARA [Concomitant]
     Active Substance: LETROZOLE
  5. CLOPIDOGREL [Concomitant]
     Active Substance: CLOPIDOGREL BISULFATE
  6. PITAVA [Suspect]
     Active Substance: PITAVASTATIN
     Indication: HYPERCHOLESTEROLAEMIA
     Route: 048
     Dates: start: 20150731, end: 20150810
  7. PANTOPRAZOLE (PANTOPRAZOLE) [Concomitant]
     Active Substance: PANTOPRAZOLE SODIUM
  8. SEVIKAR (AMLODIPINE BESILATE, OLMESARTAN MEDOXOMIL) [Concomitant]

REACTIONS (3)
  - Cholestasis [None]
  - Haemorrhoidal haemorrhage [None]
  - Pruritus [None]

NARRATIVE: CASE EVENT DATE: 20150807
